FAERS Safety Report 19259428 (Version 2)
Quarter: 2021Q3

REPORT INFORMATION
  Report Type: Spontaneous
  Country: IN (occurrence: IN)
  Receive Date: 20210514
  Receipt Date: 20210727
  Transmission Date: 20211014
  Serious: Yes (Hospitalization)
  Sender: FDA-Public Use
  Company Number: IN-BAUSCH-BL-2021-016097

PATIENT
  Age: 30 Year
  Sex: Male

DRUGS (6)
  1. METOCLOPRAMIDE. [Suspect]
     Active Substance: METOCLOPRAMIDE
     Indication: HEADACHE
     Route: 065
  2. METOCLOPRAMIDE. [Suspect]
     Active Substance: METOCLOPRAMIDE
     Indication: INSOMNIA
  3. TRAMADOL. [Suspect]
     Active Substance: TRAMADOL
     Indication: HEADACHE
     Route: 065
  4. TRAMADOL. [Suspect]
     Active Substance: TRAMADOL
     Indication: INSOMNIA
  5. ONDANSETRON [Suspect]
     Active Substance: ONDANSETRON
     Indication: INSOMNIA
  6. ONDANSETRON [Suspect]
     Active Substance: ONDANSETRON
     Indication: HEADACHE
     Route: 065

REACTIONS (1)
  - Serotonin syndrome [Recovered/Resolved]
